FAERS Safety Report 14862202 (Version 2)
Quarter: 2018Q3

REPORT INFORMATION
  Report Type: Spontaneous
  Country: US (occurrence: US)
  Receive Date: 20180508
  Receipt Date: 20180714
  Transmission Date: 20181010
  Serious: No
  Sender: FDA-Public Use
  Company Number: US-009507513-1804USA009978

PATIENT
  Sex: Female

DRUGS (1)
  1. EMEND (FOSAPREPITANT DIMEGLUMINE) [Suspect]
     Active Substance: FOSAPREPITANT DIMEGLUMINE
     Indication: PROPHYLAXIS OF NAUSEA AND VOMITING
     Dosage: DILUTED INTO 0.9% SODIUM CHLORIDE IV 250 ML BAGS TO A CONCENTRATION 150 MG/250
     Route: 042
     Dates: start: 2013

REACTIONS (2)
  - Infusion site pain [Unknown]
  - Product preparation error [Unknown]
